FAERS Safety Report 10249983 (Version 1)
Quarter: 2014Q2

REPORT INFORMATION
  Report Type: Spontaneous
  Country: US (occurrence: US)
  Receive Date: 20140620
  Receipt Date: 20140620
  Transmission Date: 20141212
  Serious: Yes (Other)
  Sender: FDA-Public Use
  Company Number: US-PFIZER INC-2014166761

PATIENT
  Age: 41 Year
  Sex: Female

DRUGS (2)
  1. DILANTIN [Suspect]
     Indication: HEADACHE
     Dosage: 100 MG, 3X/DAY
     Route: 048
     Dates: start: 1977
  2. DILANTIN [Suspect]
     Indication: VERTIGO

REACTIONS (1)
  - Autoimmune thyroiditis [Not Recovered/Not Resolved]
